FAERS Safety Report 15329516 (Version 1)
Quarter: 2018Q3

REPORT INFORMATION
  Report Type: Report from Study
  Country: CZ (occurrence: CZ)
  Receive Date: 20180829
  Receipt Date: 20180829
  Transmission Date: 20181010
  Serious: Yes (Hospitalization)
  Sender: FDA-Public Use
  Company Number: CZ-ROCHE-1851752

PATIENT
  Age: 69 Year
  Sex: Male
  Weight: 78 kg

DRUGS (126)
  1. VENETOCLAX. [Suspect]
     Active Substance: VENETOCLAX
     Indication: DIFFUSE LARGE B-CELL LYMPHOMA
  2. NORMAL SALINE [Concomitant]
     Active Substance: SODIUM CHLORIDE
     Indication: PROPHYLAXIS
     Route: 065
     Dates: start: 20161021
  3. NORMAL SALINE [Concomitant]
     Active Substance: SODIUM CHLORIDE
     Route: 065
     Dates: start: 20161021, end: 20161029
  4. OMEPRAZOLUM [Concomitant]
     Route: 065
     Dates: start: 20161004, end: 20161109
  5. FUROSEMIDUM [Concomitant]
     Active Substance: FUROSEMIDE
     Route: 065
     Dates: start: 20161023, end: 20161025
  6. FUROSEMIDUM [Concomitant]
     Active Substance: FUROSEMIDE
     Route: 065
     Dates: start: 20161108, end: 20161109
  7. BENZYDAMINE HYDROCHLORIDE [Concomitant]
     Active Substance: BENZYDAMINE HYDROCHLORIDE
     Indication: MUCOSAL INFLAMMATION
     Route: 065
     Dates: start: 20161014, end: 20161026
  8. FILGRASTIM [Concomitant]
     Active Substance: FILGRASTIM
     Route: 065
     Dates: start: 20161126, end: 20161202
  9. FILGRASTIM [Concomitant]
     Active Substance: FILGRASTIM
     Route: 065
     Dates: start: 20161129, end: 20161203
  10. GRANISETRON [Concomitant]
     Active Substance: GRANISETRON
     Indication: NAUSEA
     Route: 065
     Dates: start: 20161011, end: 20161011
  11. GRANISETRON [Concomitant]
     Active Substance: GRANISETRON
     Route: 065
     Dates: start: 20161105, end: 20161106
  12. BISULEPIN HYDROCHLORIDE [Concomitant]
     Active Substance: BISULEPIN HYDROCHLORIDE
     Indication: RASH
     Route: 065
     Dates: start: 20161029, end: 20161029
  13. INADINE [Concomitant]
     Indication: CELLULITIS
     Route: 065
     Dates: start: 20161028, end: 20161101
  14. LACTULOSUM [Concomitant]
     Indication: CONSTIPATION PROPHYLAXIS
     Route: 065
     Dates: start: 20161030, end: 20161031
  15. AMIKACINI DISULFAS [Concomitant]
     Indication: MUCOSAL INFLAMMATION
     Route: 065
     Dates: start: 20161106, end: 20161109
  16. TRIMECAIN [Concomitant]
     Indication: MUCOSAL INFLAMMATION
     Route: 065
     Dates: start: 20161108, end: 20170314
  17. VALSARTAN COMP [Concomitant]
     Active Substance: HYDROCHLOROTHIAZIDE\VALSARTAN
     Indication: HYPERTENSION
     Route: 065
     Dates: start: 20161014
  18. ACICLOVIRUM [Concomitant]
     Indication: PROPHYLAXIS
     Route: 065
     Dates: start: 20161014
  19. LATANOPROSTUM [Concomitant]
     Indication: GLAUCOMA
     Route: 065
     Dates: start: 20161005, end: 20161006
  20. NORMAL SALINE [Concomitant]
     Active Substance: SODIUM CHLORIDE
     Route: 065
     Dates: start: 20161105, end: 20161109
  21. FUROSEMIDUM [Concomitant]
     Active Substance: FUROSEMIDE
     Route: 065
     Dates: start: 20161220, end: 20161224
  22. PARACETAMOLUM [Concomitant]
     Active Substance: ACETAMINOPHEN
     Route: 065
     Dates: start: 20161212, end: 20161212
  23. FILGRASTIM [Concomitant]
     Active Substance: FILGRASTIM
     Indication: FEBRILE NEUTROPENIA
     Route: 065
     Dates: start: 20161021, end: 20161022
  24. METAMIZOLE SODIUM SALT MONOHYDRATE [Concomitant]
     Indication: PYREXIA
     Route: 065
     Dates: start: 20161023
  25. ZOLPIDEMI TARTRAS [Concomitant]
     Route: 065
     Dates: start: 20161023, end: 20161023
  26. GRANISETRON [Concomitant]
     Active Substance: GRANISETRON
     Indication: PROPHYLAXIS OF NAUSEA AND VOMITING
     Route: 065
     Dates: start: 20161027, end: 20161027
  27. TIGECYCLINE. [Concomitant]
     Active Substance: TIGECYCLINE
     Indication: MUCOSAL INFLAMMATION
     Route: 065
     Dates: start: 20161106, end: 20161109
  28. RABEPRAZOLUM NATRICUM [Concomitant]
     Indication: PROPHYLAXIS
     Route: 065
     Dates: start: 20161110, end: 20161129
  29. RABEPRAZOLUM NATRICUM [Concomitant]
     Route: 065
     Dates: start: 20161121
  30. ALLOPURINOL. [Concomitant]
     Active Substance: ALLOPURINOL
     Indication: PROPHYLAXIS
     Route: 065
     Dates: start: 20161004
  31. CIPROFLOXACINI HYDROCHLORIDUM [Concomitant]
     Indication: PNEUMONIA
     Route: 065
     Dates: start: 20161222, end: 20170104
  32. IPRATROPII BROMIDUM [Concomitant]
     Indication: INFECTION PROPHYLAXIS
     Route: 065
     Dates: start: 20161221, end: 20170104
  33. AMBROXOLI HYDROCHLORIDUM [Concomitant]
     Indication: INFECTION PROPHYLAXIS
     Route: 065
     Dates: start: 20161221, end: 20170104
  34. FLUCONAZOLUM [Concomitant]
     Indication: CANDIDA INFECTION
     Route: 065
     Dates: start: 20161031, end: 20161101
  35. FLUCONAZOLUM [Concomitant]
     Indication: FEBRILE NEUTROPENIA
     Dosage: FOR FEBRILE NEUTROPENIA
     Route: 065
     Dates: start: 20161221, end: 20170103
  36. AMLODIPINUM [Concomitant]
     Route: 065
     Dates: start: 20161105, end: 20161109
  37. CYCLOPHOSPHAMIDE. [Suspect]
     Active Substance: CYCLOPHOSPHAMIDE
     Indication: DIFFUSE LARGE B-CELL LYMPHOMA
  38. KETOTIFEN FUMARATE. [Concomitant]
     Active Substance: KETOTIFEN FUMARATE
     Indication: ASTHMA
     Route: 065
     Dates: start: 2010
  39. NORMAL SALINE [Concomitant]
     Active Substance: SODIUM CHLORIDE
     Route: 065
     Dates: start: 20161130
  40. OMEPRAZOLUM [Concomitant]
     Route: 065
     Dates: start: 20161130, end: 20161204
  41. HYDROCORTISONE. [Concomitant]
     Active Substance: HYDROCORTISONE
     Indication: INFUSION RELATED REACTION
     Route: 065
     Dates: start: 20161010, end: 20161010
  42. HYDROCORTISONE. [Concomitant]
     Active Substance: HYDROCORTISONE
     Route: 065
     Dates: start: 20161121, end: 20161121
  43. PARACETAMOLUM [Concomitant]
     Active Substance: ACETAMINOPHEN
     Route: 065
     Dates: start: 201702, end: 201702
  44. BENZYDAMINE HYDROCHLORIDE [Concomitant]
     Active Substance: BENZYDAMINE HYDROCHLORIDE
     Route: 065
     Dates: start: 20161027, end: 20161027
  45. FILGRASTIM [Concomitant]
     Active Substance: FILGRASTIM
     Route: 065
     Dates: start: 20161023, end: 20161023
  46. FILGRASTIM [Concomitant]
     Active Substance: FILGRASTIM
     Route: 065
     Dates: start: 20161102, end: 20161108
  47. GLYCEROLUM [Concomitant]
     Route: 065
     Dates: start: 20161031, end: 20161031
  48. METOCLOPRAMIDI HYDROCHLORIDUM [Concomitant]
     Indication: PROPHYLAXIS OF NAUSEA AND VOMITING
     Dosage: MONOHYDRICUM
     Route: 065
     Dates: start: 20161107, end: 20161107
  49. OSELTAMIVIRUM [Concomitant]
     Indication: INFECTION PROPHYLAXIS
     Route: 065
     Dates: start: 20161219, end: 20161222
  50. OMEPRAZOLUM [Concomitant]
     Indication: PROPHYLAXIS
     Route: 065
     Dates: start: 20161219, end: 20170104
  51. OMEPRAZOLUM [Concomitant]
     Route: 065
     Dates: start: 20161130, end: 20161204
  52. CIPROFLOXACINUM [Concomitant]
     Indication: PROPHYLAXIS
     Route: 065
     Dates: start: 20161205, end: 20161211
  53. VINCRISTINE [Suspect]
     Active Substance: VINCRISTINE
     Indication: DIFFUSE LARGE B-CELL LYMPHOMA
  54. SALBUTAMOLI SULFAS [Concomitant]
     Indication: ASTHMA
     Route: 065
     Dates: start: 2010
  55. OMEPRAZOLUM [Concomitant]
     Indication: PROPHYLAXIS
     Route: 065
     Dates: start: 20161004, end: 20161120
  56. BISULEPIN HYDROCHLORIDE [Concomitant]
     Active Substance: BISULEPIN HYDROCHLORIDE
     Route: 065
     Dates: start: 20161212, end: 20161212
  57. FILGRASTIM [Concomitant]
     Active Substance: FILGRASTIM
     Indication: NEUTROPENIA
     Route: 065
     Dates: start: 20161014, end: 20161023
  58. CAPHOSOL [Concomitant]
     Active Substance: CALCIUM CHLORIDE\SODIUM CHLORIDE\SODIUM PHOSPHATE, DIBASIC, ANHYDROUS\SODIUM PHOSPHATE, MONOBASIC, ANHYDROUS
     Indication: MUCOSAL INFLAMMATION
     Route: 065
     Dates: start: 20161105, end: 20161109
  59. ALPRAZOLAMUM [Concomitant]
     Indication: PROPHYLAXIS
     Route: 065
     Dates: start: 20161108, end: 20161109
  60. FORMOTEROLI FUMARAS [Concomitant]
     Indication: ASTHMA
     Route: 065
     Dates: start: 2010, end: 20161129
  61. KETOTIFEN FUMARATE. [Concomitant]
     Active Substance: KETOTIFEN FUMARATE
     Indication: ASTHMA
     Route: 065
     Dates: start: 2010, end: 20161118
  62. AMLODIPIN [Concomitant]
     Active Substance: AMLODIPINE BESYLATE
     Indication: HYPERTENSION
     Route: 065
     Dates: start: 20161105, end: 20161109
  63. AMLODIPINUM [Concomitant]
     Indication: HYPERTENSION
     Route: 065
     Dates: start: 20161022, end: 20161031
  64. RITUXIMAB. [Suspect]
     Active Substance: RITUXIMAB
     Indication: NON-HODGKIN^S LYMPHOMA
     Dosage: MOST RECENT DOSE PRIOR TO THE ONSET OF NEUTROPENIA WAS 735 MG ON 27/OCT/2016 AT 15:00?MOST RECENT DO
     Route: 042
     Dates: start: 20161007
  65. BUDESONIDUM [Concomitant]
     Active Substance: BUDESONIDE
     Route: 065
     Dates: start: 20161205
  66. SALBUTAMOLI SULFAS [Concomitant]
     Indication: COUGH
     Route: 065
     Dates: start: 201612
  67. NADROPARINUM CALCICUM [Concomitant]
     Indication: THROMBOSIS PROPHYLAXIS
     Route: 065
     Dates: start: 20161004, end: 20161013
  68. HYDROCORTISONE. [Concomitant]
     Active Substance: HYDROCORTISONE
     Dosage: FOR RITUXIMAB PREMEDICATION
     Route: 065
     Dates: start: 20161027, end: 20161027
  69. HYDROCORTISONE. [Concomitant]
     Active Substance: HYDROCORTISONE
     Route: 065
     Dates: start: 20161212, end: 20161212
  70. BENZYDAMINE HYDROCHLORIDE [Concomitant]
     Active Substance: BENZYDAMINE HYDROCHLORIDE
     Route: 065
     Dates: start: 20161014, end: 20161101
  71. FILGRASTIM [Concomitant]
     Active Substance: FILGRASTIM
     Route: 065
     Dates: start: 20161117, end: 20161218
  72. GRANISETRON [Concomitant]
     Active Substance: GRANISETRON
     Route: 065
     Dates: start: 20161029, end: 20161031
  73. GRANISETRON [Concomitant]
     Active Substance: GRANISETRON
     Route: 065
     Dates: start: 20161130, end: 20161201
  74. POVIDONUM IODINATUM [Concomitant]
     Indication: CELLULITIS
     Route: 065
     Dates: start: 20161023, end: 20161028
  75. IRRADIATED PACKED RED BLOOD CELLS [Concomitant]
     Indication: ANAEMIA
     Dosage: 2
     Route: 065
     Dates: start: 20161108, end: 20161108
  76. IRRADIATED PACKED RED BLOOD CELLS [Concomitant]
     Dosage: 2
     Route: 065
     Dates: start: 20161221, end: 20161221
  77. RABEPRAZOLUM NATRICUM [Concomitant]
     Route: 065
     Dates: start: 20161205, end: 20161219
  78. FORMOTEROLI FUMARAS [Concomitant]
     Route: 065
     Dates: start: 20161205, end: 20161218
  79. METAMIZOLUM NATRICUM [Concomitant]
     Indication: FEBRILE NEUTROPENIA
     Route: 065
     Dates: start: 20161129, end: 20161130
  80. METAMIZOLUM NATRICUM [Concomitant]
     Route: 065
     Dates: start: 20161122, end: 20161225
  81. PREDNISONE. [Suspect]
     Active Substance: PREDNISONE
     Indication: NON-HODGKIN^S LYMPHOMA
     Dosage: MOST RECENT DOSE PRIOR TO THE ONSET OF NEUTROPENIA WAS 100 MG ON 31/OCT/2016?MOST RECENT DOSE PRIOR
     Route: 048
     Dates: start: 20161007
  82. PREDNISONE. [Suspect]
     Active Substance: PREDNISONE
     Indication: DIFFUSE LARGE B-CELL LYMPHOMA
  83. FUROSEMIDUM [Concomitant]
     Active Substance: FUROSEMIDE
     Indication: PROPHYLAXIS
     Route: 065
     Dates: start: 20161006, end: 20161013
  84. HYDROCORTISONE. [Concomitant]
     Active Substance: HYDROCORTISONE
     Indication: PREMEDICATION
     Route: 065
     Dates: start: 20161010, end: 20161010
  85. PARACETAMOLUM [Concomitant]
     Active Substance: ACETAMINOPHEN
     Indication: PREMEDICATION
     Route: 065
     Dates: start: 20161010, end: 20161010
  86. PARACETAMOLUM [Concomitant]
     Active Substance: ACETAMINOPHEN
     Indication: CHRONIC OBSTRUCTIVE PULMONARY DISEASE
     Route: 065
     Dates: start: 20161027, end: 20161027
  87. BISULEPIN HYDROCHLORIDE [Concomitant]
     Active Substance: BISULEPIN HYDROCHLORIDE
     Indication: INFUSION RELATED REACTION
     Route: 065
     Dates: start: 20161010, end: 20161010
  88. FILGRASTIM [Concomitant]
     Active Substance: FILGRASTIM
     Route: 065
     Dates: start: 20161219, end: 20161224
  89. GLYCEROLUM [Concomitant]
     Indication: CONSTIPATION PROPHYLAXIS
     Route: 065
     Dates: start: 20161022, end: 20161022
  90. METOCLOPRAMIDI HYDROCHLORIDUM [Concomitant]
     Indication: NAUSEA
     Dosage: MONOHYDRICUM
     Route: 065
     Dates: start: 20161105, end: 20161105
  91. CLINDAMYCIN?2?DIHYDROGENPHOSPHAT [Concomitant]
     Indication: MUCOSAL INFLAMMATION
     Route: 065
     Dates: start: 20161021, end: 20161104
  92. RABEPRAZOLUM NATRICUM [Concomitant]
     Route: 065
     Dates: start: 20161201, end: 20161203
  93. MOXIFLOXACINUM [Concomitant]
     Indication: INFECTION PROPHYLAXIS
     Route: 065
     Dates: start: 20161110, end: 20161114
  94. METAMIZOLUM NATRICUM [Concomitant]
     Indication: PNEUMONIA
     Route: 065
     Dates: start: 20161219, end: 20161221
  95. VENETOCLAX. [Suspect]
     Active Substance: VENETOCLAX
     Indication: NON-HODGKIN^S LYMPHOMA
     Dosage: MOST RECENT DOSE PRIOR TO ONSET OF NEUTROPENIA WAS 04/NOV/2016?MOST RECENT DOSE PRIOR TO ONSET OF S.
     Route: 048
     Dates: start: 20161010
  96. RITUXIMAB. [Suspect]
     Active Substance: RITUXIMAB
     Indication: DIFFUSE LARGE B-CELL LYMPHOMA
  97. CYCLOPHOSPHAMIDE. [Suspect]
     Active Substance: CYCLOPHOSPHAMIDE
     Indication: NON-HODGKIN^S LYMPHOMA
     Dosage: MOST RECENT DOSE PRIOR TO THE ONSET OF NEUTROPENIA WAS 1470 MG ON 27/OCT/2016 AT 18:15?MOST RECENT D
     Route: 042
     Dates: start: 20161008
  98. BUDESONIDUM [Concomitant]
     Active Substance: BUDESONIDE
     Indication: ASTHMA
     Route: 065
     Dates: end: 20161129
  99. NORMAL SALINE [Concomitant]
     Active Substance: SODIUM CHLORIDE
     Indication: CELLULITIS
     Route: 065
     Dates: start: 20161004, end: 20161011
  100. FUROSEMIDUM [Concomitant]
     Active Substance: FUROSEMIDE
     Route: 065
     Dates: start: 20161027, end: 20161030
  101. PARACETAMOLUM [Concomitant]
     Active Substance: ACETAMINOPHEN
     Route: 065
     Dates: start: 20161121, end: 20161121
  102. BISULEPIN HYDROCHLORIDE [Concomitant]
     Active Substance: BISULEPIN HYDROCHLORIDE
     Indication: PREMEDICATION
     Route: 065
     Dates: start: 20161121, end: 20161121
  103. FILGRASTIM [Concomitant]
     Active Substance: FILGRASTIM
     Route: 065
     Dates: start: 20161204, end: 20161204
  104. METAMIZOLE SODIUM SALT MONOHYDRATE [Concomitant]
     Indication: MUCOSAL INFLAMMATION
     Route: 065
     Dates: start: 20161109, end: 20161110
  105. GRANISETRON [Concomitant]
     Active Substance: GRANISETRON
     Route: 065
     Dates: start: 20161107, end: 20161110
  106. METHOTREXATUM [Concomitant]
     Active Substance: METHOTREXATE
     Indication: PROPHYLAXIS
     Route: 065
     Dates: start: 20161027, end: 20161027
  107. TRAMADOLI HYDROCHLORIDUM [Concomitant]
     Route: 065
     Dates: start: 20161221, end: 20161227
  108. METOCLOPRAMIDI HYDROCHLORIDUM [Concomitant]
     Route: 065
     Dates: start: 20161130, end: 20161201
  109. GRANISETRONUM [Concomitant]
     Indication: VOMITING
     Route: 065
     Dates: start: 20161130, end: 20161201
  110. AMLODIPIN [Concomitant]
     Active Substance: AMLODIPINE BESYLATE
     Route: 065
     Dates: start: 20161022, end: 20161031
  111. METAMIZOLUM NATRICUM [Concomitant]
     Route: 065
     Dates: start: 20161109, end: 20161109
  112. METAMIZOLUM NATRICUM [Concomitant]
     Route: 065
     Dates: start: 20161201, end: 20161203
  113. DOXORUBICIN [Suspect]
     Active Substance: DOXORUBICIN
     Indication: NON-HODGKIN^S LYMPHOMA
     Dosage: MOST RECENT DOSE PRIOR TO THE ONSET OF NEUTROPENIA WAS 98 MG ON 27/OCT/2016 AT 19:20?MOST RECENT DOS
     Route: 042
     Dates: start: 20161008
  114. DOXORUBICIN [Suspect]
     Active Substance: DOXORUBICIN
     Indication: DIFFUSE LARGE B-CELL LYMPHOMA
  115. VINCRISTINE [Suspect]
     Active Substance: VINCRISTINE
     Indication: NON-HODGKIN^S LYMPHOMA
     Dosage: MOST RECENT DOSE PRIOR TO THE ONSET OF NEUTROPENIA WAS 2 MG ON 27/OCT/2016 AT 20:20?MOST RECENT DOSE
     Route: 042
     Dates: start: 20161008
  116. LATANOPROSTUM [Concomitant]
     Route: 065
  117. NORMAL SALINE [Concomitant]
     Active Substance: SODIUM CHLORIDE
     Route: 065
     Dates: start: 20161219
  118. CEFUROXIME AXETIL. [Concomitant]
     Active Substance: CEFUROXIME AXETIL
     Indication: INFECTION PROPHYLAXIS
     Route: 065
     Dates: start: 20161014, end: 20161015
  119. FILGRASTIM [Concomitant]
     Active Substance: FILGRASTIM
     Indication: PROPHYLAXIS
     Route: 065
     Dates: start: 20161013, end: 20161013
  120. METAMIZOLE SODIUM SALT MONOHYDRATE [Concomitant]
     Indication: CELLULITIS
     Route: 065
     Dates: start: 20161021
  121. POVIDONUM IODINATUM [Concomitant]
     Route: 065
     Dates: start: 20161028, end: 20161101
  122. TRAMADOLI HYDROCHLORIDUM [Concomitant]
     Indication: MUCOSAL INFLAMMATION
     Route: 065
     Dates: start: 20161105, end: 20161108
  123. TRIMECAIN [Concomitant]
     Indication: STOMATITIS
  124. ACICLOVIRUM [Concomitant]
     Indication: INFECTION PROPHYLAXIS
     Route: 065
     Dates: start: 20161202, end: 20161219
  125. FENOTEROLI HYDROBROMIDUM [Concomitant]
     Indication: INFECTION PROPHYLAXIS
     Route: 065
     Dates: start: 20161221, end: 20170104
  126. METAMIZOLUM NATRICUM [Concomitant]
     Route: 065
     Dates: start: 20161105, end: 20161106

REACTIONS (3)
  - Staphylococcal sepsis [Recovered/Resolved]
  - Febrile neutropenia [Recovered/Resolved]
  - Neutropenia [Recovered/Resolved]

NARRATIVE: CASE EVENT DATE: 20161105
